FAERS Safety Report 9484767 (Version 1)
Quarter: 2013Q3

REPORT INFORMATION
  Report Type: Spontaneous
  Country: US (occurrence: US)
  Receive Date: 20130828
  Receipt Date: 20130828
  Transmission Date: 20140515
  Serious: Yes (Hospitalization)
  Sender: FDA-Public Use
  Company Number: US-GLAXOSMITHKLINE-A1039142A

PATIENT
  Age: 71 Year
  Sex: Male

DRUGS (3)
  1. ADVAIR [Suspect]
     Indication: CHRONIC OBSTRUCTIVE PULMONARY DISEASE
     Dosage: 1PUFF TWICE PER DAY
     Route: 055
     Dates: start: 20130805
  2. OXYCODONE [Concomitant]
  3. AMBIEN [Concomitant]

REACTIONS (4)
  - Upper respiratory tract infection [Recovering/Resolving]
  - Throat irritation [Recovering/Resolving]
  - Dysphonia [Recovering/Resolving]
  - Oral candidiasis [Not Recovered/Not Resolved]
